FAERS Safety Report 7402408-9 (Version None)
Quarter: 2011Q2

REPORT INFORMATION
  Report Type: 
  Country: None (occurrence: None)
  Receive Date: 20110408
  Receipt Date: 20110404
  Transmission Date: 20111010
  Serious: Yes (Hospitalization)
  Sender: FDA-Public Use
  Company Number: US-BRISTOL-MYERS SQUIBB COMPANY-15202492

PATIENT

DRUGS (2)
  1. CETUXIMAB [Suspect]
     Indication: ASTROCYTOMA
     Dosage: LAST DOSE:07MAY2010 ACTUAL DOSE:280MG
     Route: 042
     Dates: start: 20091203, end: 20100507
  2. IRINOTECAN HCL [Suspect]
     Indication: ASTROCYTOMA
     Dosage: ACTUAL DOSE: 18MG
     Route: 042
     Dates: start: 20091203, end: 20100507

REACTIONS (3)
  - PAIN [None]
  - VOMITING [None]
  - DECREASED APPETITE [None]
